FAERS Safety Report 7470435-1 (Version None)
Quarter: 2011Q2

REPORT INFORMATION
  Report Type: 
  Country: None (occurrence: None)
  Receive Date: 20110510
  Receipt Date: 20110408
  Transmission Date: 20111010
  Serious: No
  Sender: FDA-Public Use
  Company Number: US-BAYER-2011-031601

PATIENT
  Age: 86 Year
  Sex: Male
  Weight: 73 kg

DRUGS (3)
  1. AVODART [Concomitant]
     Dosage: UNK
  2. ATENOLOL [Concomitant]
     Dosage: UNK
  3. ALEVE (CAPLET) [Suspect]
     Indication: ARTHRALGIA
     Dosage: 1 DF, BID
     Route: 048
     Dates: start: 20110403

REACTIONS (1)
  - INSOMNIA [None]
